FAERS Safety Report 19185009 (Version 1)
Quarter: 2021Q2

REPORT INFORMATION
  Report Type: Spontaneous
  Country: LT (occurrence: LT)
  Receive Date: 20210427
  Receipt Date: 20210427
  Transmission Date: 20210717
  Serious: Yes (Other)
  Sender: FDA-Public Use
  Company Number: LT-MYLANLABS-2021M1024379

PATIENT
  Age: 43 Year
  Sex: Female

DRUGS (11)
  1. OLANZAPINE. [Suspect]
     Active Substance: OLANZAPINE
     Indication: SCHIZOPHRENIA
     Dosage: 20 MILLIGRAM, QD
     Route: 065
     Dates: start: 2018
  2. TRIFLUOPERAZINE [Concomitant]
     Active Substance: TRIFLUOPERAZINE HYDROCHLORIDE
     Indication: SCHIZOAFFECTIVE DISORDER
     Dosage: UNK
     Route: 065
  3. CLONAZEPAM. [Concomitant]
     Active Substance: CLONAZEPAM
     Dosage: 2 MILLIGRAM, QD
     Route: 065
  4. CLONAZEPAM. [Concomitant]
     Active Substance: CLONAZEPAM
     Indication: IRRITABILITY
     Dosage: 4 MILLIGRAM, QD
     Route: 065
     Dates: start: 2018
  5. OLANZAPINE. [Suspect]
     Active Substance: OLANZAPINE
     Dosage: 15 MILLIGRAM, QD
     Route: 065
  6. CHLORPROMAZINE. [Concomitant]
     Active Substance: CHLORPROMAZINE
     Indication: SCHIZOPHRENIA
     Dosage: 50 MILLIGRAM, BID
     Route: 065
  7. PERPHENAZINE. [Concomitant]
     Active Substance: PERPHENAZINE
     Indication: SCHIZOAFFECTIVE DISORDER
     Dosage: UNK
     Route: 065
  8. AMITRIPTYLINE [Suspect]
     Active Substance: AMITRIPTYLINE
     Indication: SCHIZOAFFECTIVE DISORDER DEPRESSIVE TYPE
     Dosage: UNK
     Route: 065
  9. TRIHEXYPHENIDYL [Concomitant]
     Active Substance: TRIHEXYPHENIDYL
     Indication: PRODUCT USED FOR UNKNOWN INDICATION
     Dosage: UNK
     Route: 065
  10. MEDAZEPAM [Concomitant]
     Active Substance: MEDAZEPAM
     Indication: SCHIZOAFFECTIVE DISORDER
     Dosage: UNK
     Route: 065
  11. CLONAZEPAM. [Concomitant]
     Active Substance: CLONAZEPAM
     Indication: MUSCLE TIGHTNESS
     Dosage: 3 MILLIGRAM, QD
     Route: 065

REACTIONS (2)
  - Hyperhidrosis [Unknown]
  - Tardive dyskinesia [Recovering/Resolving]
